FAERS Safety Report 4880988-5 (Version None)
Quarter: 2005Q4

REPORT INFORMATION
  Report Type: 
  Country: None (occurrence: None)
  Receive Date: 20051223
  Receipt Date: 20051107
  Transmission Date: 20060501
  Serious: No
  Sender: FDA-Public Use
  Company Number: 05P-163-0316713-00

PATIENT
  Age: 69 Year
  Sex: Female

DRUGS (3)
  1. HUMIRA [Suspect]
     Indication: RHEUMATOID ARTHRITIS
     Dosage: 40 MG, SUBCUTANEOUS
     Route: 058
     Dates: end: 20050601
  2. PREDNISONE [Concomitant]
  3. ALENDRONATE SODIUM [Concomitant]

REACTIONS (2)
  - SKIN CANCER [None]
  - SKIN EXFOLIATION [None]
